FAERS Safety Report 11174878 (Version 1)
Quarter: 2015Q2

REPORT INFORMATION
  Report Type: Spontaneous
  Country: US (occurrence: None)
  Receive Date: 20150608
  Receipt Date: 20150608
  Transmission Date: 20150821
  Serious: Yes (Other)
  Sender: FDA-Public Use
  Company Number: None

PATIENT
  Age: 31 Year
  Sex: Female
  Weight: 66.23 kg

DRUGS (4)
  1. ALAWAY [Suspect]
     Active Substance: KETOTIFEN FUMARATE
     Indication: EYE PRURITUS
     Dosage: 1 DROP IN EACH EYE TWICE DAILY INTO THE EYE
     Dates: start: 20150605, end: 20150605
  2. ALAWAY [Suspect]
     Active Substance: KETOTIFEN FUMARATE
     Indication: EYE IRRITATION
     Dosage: 1 DROP IN EACH EYE TWICE DAILY INTO THE EYE
     Dates: start: 20150605, end: 20150605
  3. ALAWAY [Suspect]
     Active Substance: KETOTIFEN FUMARATE
     Indication: LACRIMATION INCREASED
     Dosage: 1 DROP IN EACH EYE TWICE DAILY INTO THE EYE
     Dates: start: 20150605, end: 20150605
  4. DEXTROAMPHETAMINE [Concomitant]
     Active Substance: DEXTROAMPHETAMINE

REACTIONS (1)
  - Urticaria [None]

NARRATIVE: CASE EVENT DATE: 20150605
